FAERS Safety Report 9076229 (Version 1)
Quarter: 2013Q1

REPORT INFORMATION
  Report Type: Report from Study
  Country: US (occurrence: US)
  Receive Date: 20130129
  Receipt Date: 20130129
  Transmission Date: 20140127
  Serious: Yes (Hospitalization, Other)
  Sender: FDA-Public Use
  Company Number: US-ABBOTT-12P-163-0920956-00

PATIENT
  Age: 18 Year
  Sex: Male

DRUGS (7)
  1. HUMIRA 40 MG/0.8 ML PEN [Suspect]
     Indication: CROHN^S DISEASE
     Dates: start: 201108
  2. PENTASA [Concomitant]
     Indication: PRODUCT USED FOR UNKNOWN INDICATION
  3. KLONOPIN [Concomitant]
     Indication: PRODUCT USED FOR UNKNOWN INDICATION
     Dosage: EVERY DAY
  4. ZOLOFT [Concomitant]
     Indication: PRODUCT USED FOR UNKNOWN INDICATION
  5. SEROQUEL [Concomitant]
     Indication: PRODUCT USED FOR UNKNOWN INDICATION
  6. SEROQUEL XR [Concomitant]
     Indication: PRODUCT USED FOR UNKNOWN INDICATION
     Dosage: TOTAL IN A DAY
  7. TRAZODONE [Concomitant]
     Indication: PRODUCT USED FOR UNKNOWN INDICATION

REACTIONS (4)
  - Clostridium difficile infection [Not Recovered/Not Resolved]
  - Clostridium difficile infection [Unknown]
  - Clostridium difficile infection [Recovered/Resolved]
  - Injection site papule [Unknown]
